FAERS Safety Report 5615211-7 (Version None)
Quarter: 2008Q1

REPORT INFORMATION
  Report Type: 
  Country: None (occurrence: None)
  Receive Date: 20080131
  Receipt Date: 20080116
  Transmission Date: 20080703
  Serious: Yes (Hospitalization)
  Sender: FDA-Public Use
  Company Number: CIP07002715

PATIENT
  Age: 75 Year
  Sex: Female

DRUGS (5)
  1. ACTONEL [Suspect]
     Indication: OSTEOPOROSIS
     Dosage: 2.5 MG DAILY, ORAL
     Route: 048
     Dates: start: 20070305
  2. LOXONIN                      /00890701/(LOXOPROFEN) [Suspect]
     Dosage: 60 MG, ORAL
     Route: 048
     Dates: start: 20070426, end: 20070618
  3. VOLTAREN [Suspect]
     Dosage: RECTAL
     Route: 054
     Dates: end: 20070601
  4. MYONAL                       /00287502/ (EPIRIZOLE HYDROCHLORIDE) [Concomitant]
  5. OTHER CHEMOTHERAPEUTICS [Concomitant]

REACTIONS (6)
  - BLOOD CREATININE INCREASED [None]
  - BLOOD UREA INCREASED [None]
  - CONDITION AGGRAVATED [None]
  - HEPATIC FUNCTION ABNORMAL [None]
  - HYPERKALAEMIA [None]
  - METABOLIC ACIDOSIS [None]
